FAERS Safety Report 7503127-0 (Version None)
Quarter: 2011Q2

REPORT INFORMATION
  Report Type: 
  Country: None (occurrence: None)
  Receive Date: 20110525
  Receipt Date: 20110510
  Transmission Date: 20111010
  Serious: Yes (Other)
  Sender: FDA-Public Use
  Company Number: US-PFIZER INC-2011110239

PATIENT
  Sex: Female

DRUGS (4)
  1. ENBREL [Suspect]
     Indication: PSORIATIC ARTHROPATHY
     Dosage: 25 MG, 2 TIMES/WK
     Dates: start: 20041001, end: 20050101
  2. AZULFIDINE [Suspect]
     Dosage: UNK
     Dates: start: 20101001
  3. HUMIRA [Suspect]
     Dosage: UNK
  4. TREXALL [Concomitant]
     Dosage: 8 MG, UNK
     Dates: start: 20030101

REACTIONS (10)
  - THERAPEUTIC RESPONSE DECREASED [None]
  - HYPERSENSITIVITY [None]
  - WHEEZING [None]
  - PRURITUS [None]
  - MALAISE [None]
  - INJECTION SITE REACTION [None]
  - HYPOAESTHESIA [None]
  - RED BLOOD CELL SEDIMENTATION RATE INCREASED [None]
  - DYSPNOEA [None]
  - PSORIATIC ARTHROPATHY [None]
